FAERS Safety Report 20912295 (Version 2)
Quarter: 2022Q2

REPORT INFORMATION
  Report Type: Spontaneous
  Country: GB (occurrence: GB)
  Receive Date: 20220603
  Receipt Date: 20220630
  Transmission Date: 20220721
  Serious: No
  Sender: FDA-Public Use
  Company Number: GB-LUPIN PHARMACEUTICALS INC.-2022-08029

PATIENT
  Age: 40 Year
  Sex: Female

DRUGS (4)
  1. METRONIDAZOLE [Suspect]
     Active Substance: METRONIDAZOLE
     Indication: Product used for unknown indication
     Dosage: UNK
     Route: 065
  2. CEFOTAXIME [Suspect]
     Active Substance: CEFOTAXIME SODIUM
     Indication: Product used for unknown indication
     Dosage: UNK
     Route: 065
  3. FERROUS SULFATE [Suspect]
     Active Substance: FERROUS SULFATE
     Indication: Microcytic anaemia
     Dosage: 200 MG, TID
     Route: 065
  4. METARAMINOL [Suspect]
     Active Substance: METARAMINOL
     Indication: Hypotension
     Dosage: 15 MILLILITER, UNK
     Route: 065

REACTIONS (1)
  - Exposure during pregnancy [Unknown]
